FAERS Safety Report 9514010 (Version 3)
Quarter: 2013Q4

REPORT INFORMATION
  Report Type: Spontaneous
  Country: JP (occurrence: JP)
  Receive Date: 20130910
  Receipt Date: 20131007
  Transmission Date: 20140711
  Serious: Yes (Hospitalization)
  Sender: FDA-Public Use
  Company Number: JP-B.I. PHARMACEUTICALS,INC./RIDGEFIELD-2013-BI-28123NB

PATIENT
  Age: 59 Year
  Sex: Male

DRUGS (9)
  1. SIFROL [Suspect]
     Indication: PARKINSON^S DISEASE
     Dosage: 3 MG
     Route: 048
  2. SIFROL [Suspect]
     Dosage: 4.5 MG
     Route: 048
  3. SIFROL [Suspect]
     Dosage: 6 MG
     Route: 048
     Dates: start: 20130909
  4. SIFROL [Suspect]
     Indication: PARKINSON^S DISEASE
     Dosage: 3 MG
     Route: 048
     Dates: end: 20130712
  5. MADOPAR [Suspect]
     Indication: PARKINSON^S DISEASE
     Dosage: 100 MG
     Route: 048
  6. FP [Suspect]
     Indication: PARKINSON^S DISEASE
     Dosage: 5 MG
     Route: 048
  7. COMTAN / ENTACAPONE [Concomitant]
     Route: 065
  8. DOPS / DROXIDOPA [Concomitant]
     Route: 065
  9. AMLODIN / AMLODIPINE BESILATE [Concomitant]
     Indication: HYPERTENSION
     Dosage: 5 MG
     Route: 048

REACTIONS (2)
  - Compression fracture [Recovered/Resolved]
  - Overdose [Unknown]
